FAERS Safety Report 24140943 (Version 4)
Quarter: 2024Q4

REPORT INFORMATION
  Report Type: Spontaneous
  Country: MX (occurrence: MX)
  Receive Date: 20240726
  Receipt Date: 20241108
  Transmission Date: 20250115
  Serious: Yes (Hospitalization)
  Sender: NOVARTIS
  Company Number: MX-002147023-NVSC2024MX153013

PATIENT
  Sex: Male

DRUGS (1)
  1. ZOLGENSMA [Suspect]
     Active Substance: ONASEMNOGENE ABEPARVOVEC-XIOI
     Indication: Product used for unknown indication
     Dosage: UNK, ONCE/SINGLE
     Route: 042
     Dates: start: 202311, end: 202311

REACTIONS (5)
  - Pneumonia [Unknown]
  - Muscle atrophy [Unknown]
  - Rhinovirus infection [Unknown]
  - Pseudomonas infection [Unknown]
  - Escherichia infection [Unknown]
